FAERS Safety Report 19978892 (Version 1)
Quarter: 2021Q4

REPORT INFORMATION
  Report Type: Report from Study
  Country: US (occurrence: US)
  Receive Date: 20211020
  Receipt Date: 20211020
  Transmission Date: 20220303
  Serious: Yes (Death)
  Sender: FDA-Public Use
  Company Number: US-TAIHO ONCOLOGY INC-EU-2021-03284

PATIENT
  Age: 31 Year
  Sex: Male

DRUGS (11)
  1. LONSURF [Suspect]
     Active Substance: TIPIRACIL HYDROCHLORIDE\TRIFLURIDINE
     Indication: Colorectal cancer
     Dosage: CYCLE UNKNOWN
     Route: 048
     Dates: start: 20210831, end: 20210922
  2. MORPHINE SULFATE [Concomitant]
     Active Substance: MORPHINE SULFATE
  3. DRONABINOL [Concomitant]
     Active Substance: DRONABINOL
  4. CHOLESTYRAMINE [Concomitant]
     Active Substance: CHOLESTYRAMINE
     Dosage: PACKET
  5. HYDROXYZINE [Concomitant]
     Active Substance: HYDROXYZINE HYDROCHLORIDE
  6. LACTULOSE [Concomitant]
     Active Substance: LACTULOSE
     Dosage: 10G/15ML SOL
  7. MIRTAZAPINE [Concomitant]
     Active Substance: MIRTAZAPINE
  8. TEMAZEPAM [Concomitant]
     Active Substance: TEMAZEPAM
  9. TAMSULOSIN [Concomitant]
     Active Substance: TAMSULOSIN
  10. ALPRAZOLAM [Concomitant]
     Active Substance: ALPRAZOLAM
  11. HYDROCODONE BITARTRATE AND ACETAMINOPHEN [Concomitant]
     Active Substance: ACETAMINOPHEN\HYDROCODONE BITARTRATE
     Dosage: 7.5/325MG

REACTIONS (1)
  - Death [Fatal]

NARRATIVE: CASE EVENT DATE: 20211012
